FAERS Safety Report 5834344-3 (Version None)
Quarter: 2008Q3

REPORT INFORMATION
  Report Type: 
  Country: None (occurrence: None)
  Receive Date: 20080805
  Receipt Date: 20080723
  Transmission Date: 20090109
  Serious: Yes (Life-Threatening, Hospitalization)
  Sender: FDA-Public Use
  Company Number: PHHO2003US05409

PATIENT
  Sex: Male
  Weight: 64.6 kg

DRUGS (15)
  1. RAD 666 RAD+ [Suspect]
     Indication: RENAL TRANSPLANT
     Dosage: 1.5 MG, BID
     Route: 048
     Dates: start: 19990126, end: 20010502
  2. SDZ RAD [Suspect]
     Indication: RENAL TRANSPLANT
     Dosage: 2.5 MG / DAY
     Route: 048
     Dates: start: 20010503
  3. NEORAL [Suspect]
     Indication: RENAL TRANSPLANT
     Dosage: 75 MG, BID
     Route: 048
     Dates: start: 20020817
  4. DELTASONE [Suspect]
     Indication: RENAL TRANSPLANT
     Dosage: 7.5 MG, QD
     Route: 048
     Dates: start: 20020204
  5. ALDACTONE [Concomitant]
  6. CLONIDINE [Concomitant]
  7. VASOTEC [Concomitant]
  8. BACTRIM [Concomitant]
  9. FOSAMAX [Concomitant]
  10. LIPITOR [Concomitant]
  11. CALCIUM CARBONATE [Concomitant]
  12. TRICOR [Concomitant]
  13. ASPIRIN [Concomitant]
  14. SUDAFED 12 HOUR [Concomitant]
  15. BUSPAR [Concomitant]

REACTIONS (4)
  - ALVEOLAR PROTEINOSIS [None]
  - HYPOXIA [None]
  - LUNG INFILTRATION [None]
  - LUNG NEOPLASM [None]
